FAERS Safety Report 20077821 (Version 8)
Quarter: 2022Q2

REPORT INFORMATION
  Report Type: Spontaneous
  Country: DE (occurrence: DE)
  Receive Date: 20211116
  Receipt Date: 20220608
  Transmission Date: 20220720
  Serious: Yes (Hospitalization, Other)
  Sender: FDA-Public Use
  Company Number: DE-TAKEDA-2021TUS006591

PATIENT
  Age: 52 Year
  Sex: Female

DRUGS (5)
  1. BUDESONIDE [Suspect]
     Active Substance: BUDESONIDE
     Indication: Product used for unknown indication
     Dosage: UNK
  2. ENTYVIO [Suspect]
     Active Substance: VEDOLIZUMAB
     Indication: Colitis ulcerative
     Dosage: UNK
     Route: 058
  3. ENTYVIO [Suspect]
     Active Substance: VEDOLIZUMAB
     Indication: Crohn^s disease
  4. CORTISONE [Concomitant]
     Active Substance: CORTISONE
     Indication: Tendonitis
     Dosage: UNK
  5. CORTISONE [Concomitant]
     Active Substance: CORTISONE
     Indication: Arthropathy

REACTIONS (31)
  - Abdominal abscess [Unknown]
  - Crohn^s disease [Unknown]
  - Arthropathy [Unknown]
  - Abdominal discomfort [Unknown]
  - Colitis [Unknown]
  - Tendonitis [Unknown]
  - Tendon pain [Unknown]
  - Illness [Unknown]
  - Defaecation urgency [Unknown]
  - Spinal pain [Unknown]
  - Therapeutic reaction time decreased [Unknown]
  - Rash pustular [Unknown]
  - Rash pruritic [Unknown]
  - Swelling of eyelid [Unknown]
  - Stress fracture [Unknown]
  - Bronchospasm [Unknown]
  - Weight increased [Unknown]
  - Weight gain poor [Unknown]
  - Malabsorption [Unknown]
  - Muscle spasms [Unknown]
  - Postoperative wound infection [Unknown]
  - Eye inflammation [Unknown]
  - Arthralgia [Unknown]
  - Contusion [Unknown]
  - Fatigue [Unknown]
  - Flatulence [Unknown]
  - Skin haemorrhage [Unknown]
  - Malaise [Unknown]
  - Nausea [Unknown]
  - Herpes zoster [Unknown]
  - Headache [Unknown]
